FAERS Safety Report 4819439-5 (Version None)
Quarter: 2005Q4

REPORT INFORMATION
  Report Type: 
  Country: None (occurrence: None)
  Receive Date: 20051103
  Receipt Date: 20051028
  Transmission Date: 20060501
  Serious: Yes (Hospitalization)
  Sender: FDA-Public Use
  Company Number: US-JNJFOC-20051100255

PATIENT
  Sex: Female
  Weight: 65.77 kg

DRUGS (11)
  1. DURAGESIC-100 [Suspect]
     Route: 062
     Dates: start: 20040101
  2. METOPROLOL [Concomitant]
     Indication: SUPRAVENTRICULAR TACHYCARDIA
     Route: 048
     Dates: start: 20040101
  3. LEVOXYL [Concomitant]
     Indication: HYPOTHYROIDISM
     Route: 048
     Dates: start: 20000101
  4. EFFEXOR [Concomitant]
     Indication: DEPRESSION
     Route: 048
     Dates: start: 20010101
  5. MIDRIN [Concomitant]
     Route: 048
     Dates: start: 20020101
  6. MIDRIN [Concomitant]
     Route: 048
     Dates: start: 20020101
  7. MIDRIN [Concomitant]
     Indication: HEADACHE
     Dosage: 2 TABLETS EVERY 6 HOURS, ORAL
     Route: 048
     Dates: start: 20020101
  8. ROBAXIN [Concomitant]
     Route: 048
     Dates: start: 20020101
  9. MOTRIN [Concomitant]
     Indication: ANTIINFLAMMATORY THERAPY
     Route: 048
     Dates: start: 20020101
  10. CODEINE [Concomitant]
     Indication: PAIN
     Route: 048
     Dates: start: 20040101
  11. FLEXERIL [Concomitant]
     Route: 048
     Dates: start: 20020101

REACTIONS (1)
  - BURSITIS [None]
